FAERS Safety Report 7945984-X (Version None)
Quarter: 2011Q4

REPORT INFORMATION
  Report Type: 
  Country: None (occurrence: None)
  Receive Date: 20111129
  Receipt Date: 20101102
  Transmission Date: 20120403
  Serious: No
  Sender: FDA-Public Use
  Company Number: US-BAYER-201041249NA

PATIENT
  Sex: Female

DRUGS (1)
  1. MENOSTAR [Suspect]

REACTIONS (1)
  - PRODUCT ADHESION ISSUE [None]
